FAERS Safety Report 4718851-2 (Version None)
Quarter: 2005Q3

REPORT INFORMATION
  Report Type: 
  Country: None (occurrence: None)
  Receive Date: 20050720
  Receipt Date: 20050706
  Transmission Date: 20060218
  Serious: Yes (Death, Life-Threatening)
  Sender: FDA-Public Use
  Company Number: 2005EU001452

PATIENT
  Age: 32 Year
  Sex: Female
  Weight: 64 kg

DRUGS (9)
  1. PROGRAF [Suspect]
     Indication: RENAL TRANSPLANT
     Dosage: 0.15 MG/KG, UID/QD, ORAL
     Route: 048
     Dates: start: 20040316, end: 20040318
  2. LASILIX (FUROSEMIDE) INFUSION, 250MG [Suspect]
     Dosage: 2.00 G. UID/QD, IV NOS
     Route: 042
     Dates: start: 20040316
  3. PREDNISONE [Suspect]
     Indication: RENAL TRANSPLANT
     Dosage: 500.00 MG, TOTAL DOSE, IV NOS; SEE IMAGE
     Route: 042
     Dates: start: 20040317, end: 20040317
  4. PREDNISONE [Suspect]
     Indication: RENAL TRANSPLANT
     Dosage: 500.00 MG, TOTAL DOSE, IV NOS; SEE IMAGE
     Route: 042
     Dates: start: 20040316
  5. PREDNISONE [Suspect]
     Indication: RENAL TRANSPLANT
     Dosage: 500.00 MG, TOTAL DOSE, IV NOS; SEE IMAGE
     Route: 042
     Dates: start: 20040318
  6. SIMULECT [Suspect]
     Indication: RENAL TRANSPLANT
     Dosage: 20.00 MG UID/QD, IV NOS; SEE IMAGE
     Route: 042
     Dates: start: 20040316, end: 20040316
  7. SIMULECT [Suspect]
     Indication: RENAL TRANSPLANT
     Dosage: 20.00 MG UID/QD, IV NOS; SEE IMAGE
     Route: 042
     Dates: start: 20040320, end: 20040320
  8. VANCOMYCIN [Suspect]
     Dosage: 500.00 MG, TOTAL DOSE, IV NOS
     Route: 042
     Dates: start: 20040316, end: 20040316
  9. CELLCEPT [Concomitant]

REACTIONS (9)
  - BLINDNESS [None]
  - CONVULSION [None]
  - DRUG LEVEL INCREASED [None]
  - ELECTROENCEPHALOGRAM ABNORMAL [None]
  - HEADACHE [None]
  - HEMIPLEGIA [None]
  - ISCHAEMIC STROKE [None]
  - LEUKOENCEPHALOPATHY [None]
  - NUCLEAR MAGNETIC RESONANCE IMAGING BRAIN ABNORMAL [None]
